FAERS Safety Report 7808419-3 (Version None)
Quarter: 2011Q4

REPORT INFORMATION
  Report Type: 
  Country: None (occurrence: None)
  Receive Date: 20111007
  Receipt Date: 20110923
  Transmission Date: 20120403
  Serious: Yes (Hospitalization)
  Sender: FDA-Public Use
  Company Number: 1000020244

PATIENT
  Age: 83 Year
  Sex: Female
  Weight: 49.9 kg

DRUGS (21)
  1. SINGULAIR (MONTELUKAST) (MONTELUKAST) [Concomitant]
  2. ALPHAGAN P (BRIMONIDINE TARTRATE) (BRIMONIDINE TARTRATE) [Concomitant]
  3. CALCIUM + VITAMIN D (CALCIUM D3) (CALCIUM D3) [Concomitant]
  4. DICYCLOMINE HYDROCHLORIDE USP (DICYCLOVERINE HYDROCHLORIDE) (DICYCLOVE [Concomitant]
  5. NITROGLYCERIN [Concomitant]
  6. SENOKOT (SENNA ALEXANDRINA) (SENNA ALEXANDRINA) [Concomitant]
  7. VENTOLIN (SALBUTAMOL) (SALBUTAMOL) [Concomitant]
  8. ACCUPRIL [Concomitant]
  9. AREDIA (PAMIDRONATE DISODIUM (PAMIDRONATE DISODIUM) [Concomitant]
  10. XALATAN [Concomitant]
  11. MIACALCIN [Concomitant]
  12. SYMBICORT TURBUHALER (BUDESONIDE, FORMOTEROL FUMARATE) (BUDESONIDE, FO [Concomitant]
  13. TYLENOL (PARACETAMOL) (PARACETAMOL) [Concomitant]
  14. CELEXA [Suspect]
     Indication: DEPRESSION
     Dosage: 5 MG (5 MG, 1 IN 1 D), ORAL
     Route: 048
     Dates: start: 20100826, end: 20100829
  15. LACTULOSE (LACTULOSE) (LACTULOSE) [Concomitant]
  16. SYNTHROID (LEVOTHYROXINE SODIUM) (LEVOTHYROXINE SODIUM) [Concomitant]
  17. THEOPHYLLINE [Concomitant]
  18. M-ESLON (MORPHINE SULFATE) (MORPHINE SULFATE) [Concomitant]
  19. QVAR (BECLOMETASONE DIPROPIONATE) (BECLOMETASONE DIPROPIONATE) [Concomitant]
  20. COLACE (DOCUSATE SODIUM) (DOCUSATE SODIUM) [Concomitant]
  21. NORVASC [Concomitant]

REACTIONS (2)
  - INAPPROPRIATE ANTIDIURETIC HORMONE SECRETION [None]
  - FALL [None]
